FAERS Safety Report 20247400 (Version 2)
Quarter: 2022Q1

REPORT INFORMATION
  Report Type: Report from Study
  Country: ES (occurrence: ES)
  Receive Date: 20211229
  Receipt Date: 20220105
  Transmission Date: 20220424
  Serious: Yes (Hospitalization)
  Sender: FDA-Public Use
  Company Number: None

PATIENT
  Age: 63 Year
  Sex: Female

DRUGS (4)
  1. TRAMADOL [Interacting]
     Active Substance: TRAMADOL
     Indication: Product used for unknown indication
     Dosage: UNK
     Dates: start: 20200913, end: 20200913
  2. LYRICA [Interacting]
     Active Substance: PREGABALIN
     Indication: Product used for unknown indication
     Dosage: UNK
     Dates: start: 20200913, end: 20200913
  3. LORAZEPAM [Interacting]
     Active Substance: LORAZEPAM
     Indication: Product used for unknown indication
     Dosage: UNK
     Dates: start: 20200913, end: 20200913
  4. DIAZEPAM [Interacting]
     Active Substance: DIAZEPAM
     Indication: Product used for unknown indication
     Dosage: UNK
     Dates: start: 20200913, end: 20200913

REACTIONS (4)
  - Depressed level of consciousness [Recovered/Resolved]
  - Pneumonia aspiration [Recovered/Resolved]
  - Suicide attempt [Unknown]
  - Drug interaction [Unknown]

NARRATIVE: CASE EVENT DATE: 20200913
